FAERS Safety Report 5500393-8 (Version None)
Quarter: 2007Q4

REPORT INFORMATION
  Report Type: 
  Country: None (occurrence: None)
  Receive Date: 20071029
  Receipt Date: 20071015
  Transmission Date: 20080405
  Serious: Yes (Other)
  Sender: FDA-Public Use
  Company Number: US-ROCHE-496299

PATIENT
  Age: 45 Year
  Sex: Female
  Weight: 89.2 kg

DRUGS (4)
  1. XELODA [Suspect]
     Indication: BREAST CANCER RECURRENT
     Route: 048
     Dates: start: 20070412, end: 20070416
  2. ATENOLOL [Concomitant]
  3. ZOLOFT [Concomitant]
  4. PRENATAL VITAMINS [Concomitant]

REACTIONS (7)
  - ATELECTASIS [None]
  - BACK PAIN [None]
  - CARDIAC FLUTTER [None]
  - CHEST PAIN [None]
  - LUNG NEOPLASM [None]
  - MUSCULOSKELETAL PAIN [None]
  - PLEURAL EFFUSION [None]
